FAERS Safety Report 6136573-0 (Version None)
Quarter: 2009Q1

REPORT INFORMATION
  Report Type: 
  Country: None (occurrence: None)
  Receive Date: 20090330
  Receipt Date: 20090323
  Transmission Date: 20090719
  Serious: Yes (Other)
  Sender: FDA-Public Use
  Company Number: US-ASTRAZENECA-2009UW07357

PATIENT
  Sex: Female

DRUGS (1)
  1. CRESTOR [Suspect]
     Route: 048

REACTIONS (9)
  - ABDOMINAL DISCOMFORT [None]
  - ASTHMA [None]
  - BLOOD PRESSURE [None]
  - CARDIAC DISORDER [None]
  - DEPRESSION [None]
  - PAIN [None]
  - SINUS DISORDER [None]
  - TYPE 2 DIABETES MELLITUS [None]
  - VERTIGO [None]
